FAERS Safety Report 5494308-9 (Version None)
Quarter: 2007Q4

REPORT INFORMATION
  Report Type: 
  Country: None (occurrence: None)
  Receive Date: 20071015
  Receipt Date: 20070801
  Transmission Date: 20080405
  Serious: No
  Sender: FDA-Public Use
  Company Number: 2007SP002726

PATIENT
  Age: 60 Year
  Sex: Male

DRUGS (4)
  1. LUNESTA [Suspect]
     Dosage: 3 MG; ORAL;  2 MG; HS; ORAL
     Route: 048
     Dates: start: 20070720, end: 20070701
  2. LUNESTA [Suspect]
     Dosage: 3 MG; ORAL;  2 MG; HS; ORAL
     Route: 048
     Dates: start: 20050101
  3. SONATA [Concomitant]
  4. OXYCODONE HCL [Concomitant]

REACTIONS (3)
  - DYSPNOEA [None]
  - HALLUCINATION [None]
  - MYOCARDIAL INFARCTION [None]
